FAERS Safety Report 5269145-0 (Version None)
Quarter: 2007Q1

REPORT INFORMATION
  Report Type: 
  Country: None (occurrence: None)
  Receive Date: 20070319
  Receipt Date: 20070312
  Transmission Date: 20070707
  Serious: Yes (Hospitalization)
  Sender: FDA-Public Use
  Company Number: BG-BOEHRINGER INGELHEIM PHARMACEUTICALS, INC.-2007-DE-01476GD

PATIENT

DRUGS (1)
  1. CLONIDINE [Suspect]

REACTIONS (1)
  - DRUG TOXICITY [None]
